FAERS Safety Report 4885210-1 (Version None)
Quarter: 2005Q4

REPORT INFORMATION
  Report Type: 
  Country: None (occurrence: None)
  Receive Date: 20051214
  Receipt Date: 20051011
  Transmission Date: 20060501
  Serious: No
  Sender: FDA-Public Use
  Company Number: S05-USA-04590-01

PATIENT
  Age: 62 Year
  Sex: Female

DRUGS (3)
  1. CAMPRAL (ACAMPROSTATE CALCIUM) [Suspect]
     Indication: ALCOHOLISM
     Dosage: 666 MG TID PO
     Route: 048
     Dates: start: 20050822
  2. BLOOD PRESSURE MEDICATION (NOS) [Concomitant]
  3. ESTRACE [Concomitant]

REACTIONS (2)
  - DIARRHOEA [None]
  - FATIGUE [None]
